FAERS Safety Report 14424292 (Version 1)
Quarter: 2018Q1

REPORT INFORMATION
  Report Type: Spontaneous
  Country: TR (occurrence: TR)
  Receive Date: 20180123
  Receipt Date: 20180123
  Transmission Date: 20180509
  Serious: Yes (Death, Hospitalization, Other)
  Sender: FDA-Public Use
  Company Number: TR-VISTAPHARM, INC.-VER201801-000195

PATIENT
  Age: 15 Year
  Sex: Female

DRUGS (3)
  1. HYDROCODONE AND ACETAMINOPHEN [Suspect]
     Active Substance: ACETAMINOPHEN\HYDROCODONE
     Indication: UPPER RESPIRATORY TRACT INFECTION
  2. CHLORPHENIRAMINE. [Suspect]
     Active Substance: CHLORPHENIRAMINE
     Indication: UPPER RESPIRATORY TRACT INFECTION
  3. CODEINE PHOSPHATE [Suspect]
     Active Substance: CODEINE PHOSPHATE
     Indication: UPPER RESPIRATORY TRACT INFECTION

REACTIONS (3)
  - Toxic epidermal necrolysis [Not Recovered/Not Resolved]
  - Cardio-respiratory arrest [Fatal]
  - Hypotension [Unknown]
